FAERS Safety Report 16155217 (Version 2)
Quarter: 2019Q2

REPORT INFORMATION
  Report Type: Report from Study
  Country: TW (occurrence: TW)
  Receive Date: 20190403
  Receipt Date: 20190529
  Transmission Date: 20190711
  Serious: Yes (Hospitalization, Other)
  Sender: FDA-Public Use
  Company Number: TW-INCYTE CORPORATION-2019IN002680

PATIENT

DRUGS (1)
  1. JAKAVI [Suspect]
     Active Substance: RUXOLITINIB
     Indication: MYELOFIBROSIS
     Dosage: 5 MG, BID
     Route: 048
     Dates: start: 20161101

REACTIONS (12)
  - Hepatitis B surface antigen positive [Unknown]
  - Myelofibrosis [Recovered/Resolved]
  - Haemangioma of liver [Unknown]
  - Cholelithiasis [Unknown]
  - Lymph nodes scan abnormal [Unknown]
  - Bronchiectasis [Not Recovered/Not Resolved]
  - Splenomegaly [Unknown]
  - Cytomegalovirus test positive [Unknown]
  - Epstein-Barr virus antibody positive [Unknown]
  - Haemoglobin decreased [Not Recovered/Not Resolved]
  - Hepatitis B core antibody positive [Unknown]
  - Varicella virus test positive [Unknown]

NARRATIVE: CASE EVENT DATE: 20190220
